FAERS Safety Report 10089075 (Version 1)
Quarter: 2014Q2

REPORT INFORMATION
  Report Type: Spontaneous
  Country: US (occurrence: US)
  Receive Date: 20140421
  Receipt Date: 20140421
  Transmission Date: 20141212
  Serious: Yes (Other)
  Sender: FDA-Public Use
  Company Number: US-AMGEN-USASP2014028130

PATIENT
  Age: 47 Year
  Sex: Female

DRUGS (1)
  1. ENBREL [Suspect]
     Indication: RHEUMATOID ARTHRITIS
     Dosage: 50 MG, QWK
     Route: 058
     Dates: start: 20140401, end: 20140415

REACTIONS (5)
  - Anaphylactic reaction [Unknown]
  - Urticaria [Unknown]
  - Rash [Unknown]
  - Dyspnoea [Unknown]
  - Swelling face [Unknown]
